FAERS Safety Report 19470640 (Version 1)
Quarter: 2021Q2

REPORT INFORMATION
  Report Type: Spontaneous
  Country: US (occurrence: US)
  Receive Date: 20210628
  Receipt Date: 20210628
  Transmission Date: 20210717
  Serious: Yes (Other)
  Sender: FDA-Public Use
  Company Number: US-ASTELLAS-2021US023390

PATIENT
  Sex: Male

DRUGS (2)
  1. ORGOVYX [Suspect]
     Active Substance: RELUGOLIX
     Indication: HORMONE-DEPENDENT PROSTATE CANCER
     Dosage: UNK UNK, UNKNOWN FREQ. (IN THE EVENING)
     Route: 065
     Dates: start: 20210418
  2. XTANDI [Suspect]
     Active Substance: ENZALUTAMIDE
     Indication: HORMONE-DEPENDENT PROSTATE CANCER
     Dosage: 4 DF, UNKNOWN FREQ. (IN THE MORNING)
     Route: 065
     Dates: start: 20210418

REACTIONS (3)
  - Abdominal discomfort [Unknown]
  - Malaise [Unknown]
  - Neuropathy peripheral [Unknown]
